FAERS Safety Report 9656493 (Version 2)
Quarter: 2013Q4

REPORT INFORMATION
  Report Type: Spontaneous
  Country: CZ (occurrence: None)
  Receive Date: 20131028
  Receipt Date: 20131105
  Transmission Date: 20140711
  Serious: Yes (Other)
  Sender: FDA-Public Use
  Company Number: FK201304739

PATIENT
  Age: 32 Year
  Sex: Female

DRUGS (16)
  1. BLEOMYCIN [Suspect]
     Indication: HODGKIN^S DISEASE
  2. BLEOMYCIN [Suspect]
     Indication: NON-HODGKIN^S LYMPHOMA
  3. ETOPOSIDE [Suspect]
     Indication: HODGKIN^S DISEASE
  4. ETOPOSIDE [Suspect]
     Indication: NON-HODGKIN^S LYMPHOMA
  5. DOXORUBICIN [Suspect]
     Indication: HODGKIN^S DISEASE
     Dosage: EIGHT CYCLES
  6. DOXORUBICIN [Suspect]
     Indication: NON-HODGKIN^S LYMPHOMA
     Dosage: EIGHT CYCLES
  7. CYCLOPHOSPHAMIDE (MANUFACTURER UNKNOWN) (CYCLOPHOSPHAMIDE) (CYCLOPHOSPHAMIDE) [Suspect]
     Indication: HODGKIN^S DISEASE
  8. CYCLOPHOSPHAMIDE (MANUFACTURER UNKNOWN) (CYCLOPHOSPHAMIDE) (CYCLOPHOSPHAMIDE) [Suspect]
     Indication: NON-HODGKIN^S LYMPHOMA
  9. VINCRISTINE [Suspect]
     Indication: HODGKIN^S DISEASE
  10. VINCRISTINE [Suspect]
     Indication: NON-HODGKIN^S LYMPHOMA
  11. PREDNISONE (PREDNISONE) (PREDNISONE) [Suspect]
     Indication: HODGKIN^S DISEASE
  12. PREDNISONE (PREDNISONE) (PREDNISONE) [Suspect]
     Indication: NON-HODGKIN^S LYMPHOMA
  13. PROCARBAZINE [Suspect]
     Indication: HODGKIN^S DISEASE
  14. PROCARBAZINE [Suspect]
     Indication: NON-HODGKIN^S LYMPHOMA
  15. RITUXIMAB (RITUXIMAB) (RITUXIMAB) [Suspect]
     Indication: HODGKIN^S DISEASE
     Route: 042
  16. RITUXIMAB (RITUXIMAB) (RITUXIMAB) [Suspect]
     Indication: NON-HODGKIN^S LYMPHOMA
     Route: 042

REACTIONS (8)
  - Anaemia [None]
  - Thrombocytopenia [None]
  - Neutropenia [None]
  - Polyneuropathy [None]
  - Respiratory tract infection [None]
  - Amenorrhoea [None]
  - Disease recurrence [None]
  - Herpes zoster [None]
